FAERS Safety Report 4681135-5 (Version None)
Quarter: 2005Q2

REPORT INFORMATION
  Report Type: 
  Country: None (occurrence: None)
  Receive Date: 20050603
  Receipt Date: 20050209
  Transmission Date: 20051028
  Serious: Yes (Death, Hospitalization)
  Sender: FDA-Public Use
  Company Number: US-MERCK-0502USA01342

PATIENT
  Age: 59 Year
  Sex: Male
  Weight: 111 kg

DRUGS (8)
  1. VIOXX [Suspect]
     Indication: NECK PAIN
     Route: 048
     Dates: start: 20020301, end: 20030102
  2. VIOXX [Suspect]
     Route: 048
     Dates: start: 20020301, end: 20030102
  3. VIOXX [Suspect]
     Indication: BACK PAIN
     Route: 048
     Dates: start: 20020301, end: 20030102
  4. VIOXX [Suspect]
     Route: 048
     Dates: start: 20020301, end: 20030102
  5. TRICOR [Concomitant]
     Indication: HYPERLIPIDAEMIA
     Route: 065
  6. GEMFIBROZIL [Concomitant]
     Route: 065
  7. VIAGRA [Concomitant]
     Indication: ERECTILE DYSFUNCTION
     Route: 065
  8. ACCUPRIL [Concomitant]
     Indication: HYPERTENSION
     Route: 065
     Dates: start: 20020101, end: 20030102

REACTIONS (4)
  - ACUTE MYOCARDIAL INFARCTION [None]
  - ATHEROSCLEROSIS [None]
  - CORONARY ARTERY DISEASE [None]
  - CORONARY ARTERY THROMBOSIS [None]
